FAERS Safety Report 23183715 (Version 4)
Quarter: 2024Q2

REPORT INFORMATION
  Report Type: Spontaneous
  Country: JP (occurrence: JP)
  Receive Date: 20231114
  Receipt Date: 20240417
  Transmission Date: 20240716
  Serious: Yes (Death, Hospitalization, Other)
  Sender: FDA-Public Use
  Company Number: JP-TAKEDA-2023TJP015006

PATIENT
  Age: 21 Year
  Sex: Male
  Weight: 40 kg

DRUGS (4)
  1. ENTYVIO [Suspect]
     Active Substance: VEDOLIZUMAB
     Indication: Colitis ulcerative
     Dosage: 300 MILLIGRAM
     Route: 041
     Dates: start: 20221104, end: 20221104
  2. AZATHIOPRINE [Concomitant]
     Active Substance: AZATHIOPRINE
     Dosage: 25 MILLIGRAM
     Route: 048
     Dates: start: 20220413, end: 20220510
  3. AZATHIOPRINE [Concomitant]
     Active Substance: AZATHIOPRINE
     Dosage: 50 MILLIGRAM, QD
     Route: 048
     Dates: start: 20220511, end: 20221108
  4. BIO-THREE [Concomitant]
     Active Substance: HERBALS
     Dosage: 6 DOSAGE FORM, TID
     Route: 048
     Dates: start: 20220106, end: 20221108

REACTIONS (6)
  - Cerebral venous sinus thrombosis [Fatal]
  - Brain oedema [Fatal]
  - Brain herniation [Fatal]
  - Cerebral haemorrhage [Fatal]
  - Colitis ulcerative [Unknown]
  - Fall [Unknown]

NARRATIVE: CASE EVENT DATE: 20221109
